FAERS Safety Report 16477677 (Version 1)
Quarter: 2019Q2

REPORT INFORMATION
  Report Type: Spontaneous
  Country: IT (occurrence: IT)
  Receive Date: 20190626
  Receipt Date: 20190626
  Transmission Date: 20190711
  Serious: Yes (Other)
  Sender: FDA-Public Use
  Company Number: IT-AMGEN-ITASP2019099836

PATIENT
  Age: 67 Year
  Sex: Male

DRUGS (4)
  1. IRINOTECAN [Suspect]
     Active Substance: IRINOTECAN
     Indication: COLON CANCER METASTATIC
     Dosage: 320 MILLIGRAM, CYCLICAL
     Route: 042
     Dates: start: 20190304, end: 20190528
  2. VECTIBIX [Suspect]
     Active Substance: PANITUMUMAB
     Indication: COLON CANCER METASTATIC
     Dosage: 450 MILLIGRAM, CYCLICAL
     Route: 042
     Dates: start: 20190325, end: 20190528
  3. DOXIFLURIDINE [Suspect]
     Active Substance: DOXIFLURIDINE
     Indication: COLON CANCER METASTATIC
     Dosage: 700 MILLIGRAM, CYCLICAL
     Route: 040
     Dates: start: 20190304, end: 20190528
  4. FLUOROURACIL. [Suspect]
     Active Substance: FLUOROURACIL
     Indication: COLON CANCER METASTATIC
     Dosage: 2000 MILLIGRAM, CYCLICAL
     Route: 042
     Dates: start: 20190304, end: 20190528

REACTIONS (2)
  - Diarrhoea [Recovered/Resolved]
  - Rectal haemorrhage [Recovered/Resolved]

NARRATIVE: CASE EVENT DATE: 20190409
